FAERS Safety Report 22635554 (Version 1)
Quarter: 2023Q2

REPORT INFORMATION
  Report Type: Spontaneous
  Country: IT (occurrence: None)
  Receive Date: 20230623
  Receipt Date: 20230623
  Transmission Date: 20230722
  Serious: Yes (Life-Threatening, Hospitalization, Other)
  Sender: FDA-Public Use
  Company Number: 2023A142371

PATIENT
  Age: 49 Year
  Sex: Female

DRUGS (1)
  1. QUETIAPINE [Suspect]
     Active Substance: QUETIAPINE
     Route: 048

REACTIONS (4)
  - Overdose [Recovered/Resolved]
  - Suicide attempt [Recovered/Resolved]
  - Electrocardiogram QT prolonged [Recovered/Resolved]
  - Myoclonic epilepsy [Recovered/Resolved]
